FAERS Safety Report 8814290 (Version 1)
Quarter: 2012Q4

REPORT INFORMATION
  Report Type: 
  Country: US (occurrence: US)
  Receive Date: 20120928
  Receipt Date: 20120928
  Transmission Date: 20130627
  Serious: Yes (Other)
  Sender: FDA-Public Use
  Company Number: US-EISAI INC-E3810-05951-SPO-US

PATIENT
  Sex: Male
  Weight: 86 kg

DRUGS (2)
  1. ACIPHEX (RABEPRAZOLE) [Suspect]
     Indication: ACID REFLUX (ESOPHAGEAL)
     Route: 048
     Dates: start: 2002
  2. LISINOPRIL [Concomitant]
     Indication: BLOOD PRESSURE HIGH
     Route: 048
     Dates: start: 2002

REACTIONS (5)
  - Non-Hodgkin^s lymphoma [Recovered/Resolved]
  - Cardiac murmur [Unknown]
  - Osteoarthritis [Unknown]
  - Atrial fibrillation [Unknown]
  - Blood pressure increased [Unknown]
